FAERS Safety Report 9701142 (Version 1)
Quarter: 2013Q4

REPORT INFORMATION
  Report Type: Spontaneous
  Country: US (occurrence: US)
  Receive Date: 20131121
  Receipt Date: 20131121
  Transmission Date: 20140711
  Serious: No
  Sender: FDA-Public Use
  Company Number: US-GILEAD-2008-0015836

PATIENT
  Age: 83 Year
  Sex: Female

DRUGS (8)
  1. LETAIRIS [Suspect]
     Indication: PULMONARY ARTERIAL HYPERTENSION
     Route: 048
     Dates: start: 20080218
  2. REVATIO [Concomitant]
     Route: 048
  3. FUROSEMIDE [Concomitant]
     Route: 048
  4. BENICAR [Concomitant]
     Route: 048
  5. COUMADIN [Concomitant]
     Route: 048
  6. ARMOUR THYROID [Concomitant]
     Route: 048
  7. ARMOUR THYROID [Concomitant]
     Route: 048
  8. TAMOXIFEN [Concomitant]
     Route: 048

REACTIONS (1)
  - Local swelling [Not Recovered/Not Resolved]
